FAERS Safety Report 11065579 (Version 2)
Quarter: 2015Q2

REPORT INFORMATION
  Report Type: Spontaneous
  Country: US (occurrence: US)
  Receive Date: 20150425
  Receipt Date: 20150525
  Transmission Date: 20150821
  Serious: No
  Sender: FDA-Public Use
  Company Number: US-JNJFOC-20140907066

PATIENT
  Age: 50 Year
  Sex: Female
  Weight: 124.74 kg

DRUGS (5)
  1. POTASSIUM [Concomitant]
     Active Substance: POTASSIUM
     Route: 065
  2. METHOTREXATE [Concomitant]
     Active Substance: METHOTREXATE
     Indication: PSORIASIS
     Dosage: 3 PILLS THURSDAY MORNING AND THURSDAY NIGHT AND 2 FRIDAY
     Route: 065
  3. STELARA [Suspect]
     Active Substance: USTEKINUMAB
     Indication: PSORIASIS
     Route: 058
  4. FOLIC ACID. [Concomitant]
     Active Substance: FOLIC ACID
     Route: 065
  5. STELARA [Suspect]
     Active Substance: USTEKINUMAB
     Indication: PSORIATIC ARTHROPATHY
     Route: 058

REACTIONS (5)
  - Drug dose omission [Unknown]
  - Needle issue [Unknown]
  - Syringe issue [Unknown]
  - Product packaging issue [Unknown]
  - Device leakage [Unknown]

NARRATIVE: CASE EVENT DATE: 20140904
